FAERS Safety Report 11130523 (Version 12)
Quarter: 2016Q1

REPORT INFORMATION
  Report Type: Report from Study
  Country: KR (occurrence: KR)
  Receive Date: 20150522
  Receipt Date: 20160225
  Transmission Date: 20160525
  Serious: Yes (Hospitalization)
  Sender: FDA-Public Use
  Company Number: KR-ROCHE-1578462

PATIENT
  Age: 50 Year
  Sex: Female
  Weight: 51.9 kg

DRUGS (20)
  1. ACETAMINOPHEN. [Concomitant]
     Active Substance: ACETAMINOPHEN
     Route: 065
     Dates: start: 20150516, end: 20150519
  2. TRAMADOL. [Concomitant]
     Active Substance: TRAMADOL
     Route: 065
     Dates: start: 20150304, end: 20150304
  3. PIROXICAM. [Concomitant]
     Active Substance: PIROXICAM
     Dosage: TOTAL DOSE: 1 PATCH
     Route: 065
     Dates: start: 20150508, end: 20150514
  4. TRAMADOL. [Concomitant]
     Active Substance: TRAMADOL
     Route: 065
     Dates: start: 20150302, end: 20150302
  5. PERTUZUMAB [Suspect]
     Active Substance: PERTUZUMAB
     Dosage: MAINTENANCE DOSE?DATE OF MOST RECENT DOSE: 29/APR/2015
     Route: 042
  6. SODIUM ALGINATE [Concomitant]
     Active Substance: SODIUM ALGINATE
     Route: 065
     Dates: start: 20150305
  7. FLUMETHASONE [Concomitant]
     Dosage: TOTAL DOSE: 1 DROP
     Route: 065
     Dates: start: 20150311
  8. HYALURONATE SODIUM [Concomitant]
     Active Substance: HYALURONATE SODIUM
     Route: 065
     Dates: start: 20150311
  9. BENZYDAMINE [Concomitant]
     Active Substance: BENZYDAMINE
     Route: 065
     Dates: start: 20150311
  10. ACETAMINOPHEN. [Concomitant]
     Active Substance: ACETAMINOPHEN
     Route: 065
     Dates: start: 20150130, end: 20150407
  11. LACTULOSE. [Concomitant]
     Active Substance: LACTULOSE
     Route: 065
     Dates: start: 20150305
  12. HYALURONATE SODIUM [Concomitant]
     Active Substance: HYALURONATE SODIUM
     Route: 065
     Dates: start: 20150209, end: 20150225
  13. ACECLOFENAC [Concomitant]
     Active Substance: ACECLOFENAC
     Route: 065
     Dates: start: 20150516
  14. SILYMARIN [Concomitant]
     Active Substance: MILK THISTLE
     Route: 065
     Dates: start: 20150217, end: 20150225
  15. TRASTUZUMAB EMTANSINE [Suspect]
     Active Substance: ADO-TRASTUZUMAB EMTANSINE
     Indication: HER-2 POSITIVE BREAST CANCER
     Dosage: DATE OF MOST RECENT DOSE: 29/APR/2015 159 MG
     Route: 042
     Dates: start: 20150130
  16. PERTUZUMAB [Suspect]
     Active Substance: PERTUZUMAB
     Indication: HER-2 POSITIVE BREAST CANCER
     Dosage: LOADING DOSE
     Route: 042
     Dates: start: 20150130
  17. ACECLOFENAC [Concomitant]
     Active Substance: ACECLOFENAC
     Dosage: TOTAL DOSE: 1 TABLET
     Route: 065
     Dates: start: 20150508, end: 20150514
  18. MAGNESIUM OXIDE. [Concomitant]
     Active Substance: MAGNESIUM OXIDE
     Route: 065
     Dates: start: 20150225
  19. PANTOPRAZOLE [Concomitant]
     Active Substance: PANTOPRAZOLE SODIUM
     Route: 065
     Dates: start: 20150304
  20. UDCA [Concomitant]
     Route: 065
     Dates: start: 20150217, end: 20150225

REACTIONS (1)
  - Pneumonitis [Recovered/Resolved]

NARRATIVE: CASE EVENT DATE: 20150513
